FAERS Safety Report 8799203 (Version 1)
Quarter: 2012Q4

REPORT INFORMATION
  Report Type: 
  Country: US (occurrence: US)
  Receive Date: 20120920
  Receipt Date: 20120920
  Transmission Date: 20130627
  Serious: No
  Sender: FDA-Public Use
  Company Number: US-ASTRAZENECA-2012SE24572

PATIENT
  Age: 82 Year
  Sex: Female
  Weight: 72.6 kg

DRUGS (4)
  1. LISINOPRIL [Suspect]
     Route: 048
  2. BRILINTA [Suspect]
     Route: 048
  3. METOPROLOL [Concomitant]
  4. BABY ASPIRIN [Concomitant]

REACTIONS (1)
  - Blood glucose increased [Unknown]
